FAERS Safety Report 5554506-2 (Version None)
Quarter: 2007Q4

REPORT INFORMATION
  Report Type: 
  Country: None (occurrence: None)
  Receive Date: 20071213
  Receipt Date: 20071129
  Transmission Date: 20080405
  Serious: Yes (Hospitalization)
  Sender: FDA-Public Use
  Company Number: JP-AMGEN-US255715

PATIENT

DRUGS (3)
  1. ENBREL [Suspect]
     Indication: RHEUMATOID ARTHRITIS
     Route: 058
     Dates: start: 20070601, end: 20071101
  2. ETODOLAC [Concomitant]
     Dosage: UNSPECIFIED
     Route: 048
  3. ARAVA [Concomitant]
     Dosage: UNSPECIFIED
     Route: 048

REACTIONS (1)
  - NEPHRITIC SYNDROME [None]
